FAERS Safety Report 15987466 (Version 1)
Quarter: 2019Q1

REPORT INFORMATION
  Report Type: Spontaneous
  Country: US (occurrence: US)
  Receive Date: 20190220
  Receipt Date: 20190220
  Transmission Date: 20190418
  Serious: Yes (Hospitalization)
  Sender: FDA-Public Use
  Company Number: PHHY2019US033225

PATIENT
  Age: 16 Year
  Sex: Male

DRUGS (1)
  1. AMPICILLIN [Suspect]
     Active Substance: AMPICILLIN
     Indication: ESCHERICHIA URINARY TRACT INFECTION
     Route: 065

REACTIONS (6)
  - Salmonellosis [Unknown]
  - Abdominal pain [Recovering/Resolving]
  - Food intolerance [Unknown]
  - Clostridium difficile infection [Unknown]
  - Pyrexia [Unknown]
  - Urinary tract infection [Unknown]
